FAERS Safety Report 9682890 (Version 3)
Quarter: 2014Q1

REPORT INFORMATION
  Report Type: Spontaneous
  Country: BR (occurrence: BR)
  Receive Date: 20131112
  Receipt Date: 20140211
  Transmission Date: 20141002
  Serious: Yes (Other)
  Sender: FDA-Public Use
  Company Number: BR-ELI_LILLY_AND_COMPANY-BR201310010193

PATIENT
  Sex: Male
  Weight: 109 kg

DRUGS (11)
  1. ZYPREXA [Suspect]
     Indication: BIPOLAR DISORDER
     Dosage: UNK, UNKNOWN
     Route: 048
     Dates: start: 2003, end: 201212
  2. ZYPREXA [Suspect]
     Dosage: 5 MG, QD
     Route: 048
     Dates: start: 201212, end: 201306
  3. ZYPREXA [Suspect]
     Dosage: 5 MG, EACH MORNING
     Route: 048
     Dates: start: 201306
  4. ZYPREXA [Suspect]
     Dosage: 15 MG, EACH EVENING
     Route: 048
     Dates: start: 201306
  5. ZYPREXA [Suspect]
     Dosage: 1.25 MG, UNKNOWN
     Route: 065
  6. ZYPREXA [Suspect]
     Dosage: 20 MG, UNKNOWN
     Route: 065
  7. ASENAPINE MALEATE [Concomitant]
     Indication: BIPOLAR DISORDER
     Dosage: 10 MG, QD
     Route: 065
  8. ARIPIPRAZOLE [Concomitant]
     Indication: BIPOLAR DISORDER
     Dosage: 30 MG, TID
     Route: 065
  9. DEPAKOTE ER [Concomitant]
     Indication: BIPOLAR DISORDER
     Dosage: UNK, QD
     Route: 065
  10. CARBOLITIUM [Concomitant]
     Indication: BIPOLAR DISORDER
     Dosage: 900 MG, BID
     Route: 065
  11. CLOZAPINA [Concomitant]
     Indication: PRODUCT USED FOR UNKNOWN INDICATION
     Dosage: UNK, UNKNOWN
     Route: 065

REACTIONS (6)
  - Hepatic steatosis [Unknown]
  - Weight increased [Not Recovered/Not Resolved]
  - Mania [Unknown]
  - Blood triglycerides increased [Unknown]
  - Blood cholesterol increased [Unknown]
  - Blood glucose increased [Unknown]
